FAERS Safety Report 12988643 (Version 1)
Quarter: 2016Q4

REPORT INFORMATION
  Report Type: Spontaneous
  Country: US (occurrence: US)
  Receive Date: 20161130
  Receipt Date: 20161130
  Transmission Date: 20170207
  Serious: Yes (Other)
  Sender: FDA-Public Use
  Company Number: US-BAUSCH-BL-2016-028185

PATIENT
  Age: 57 Year
  Sex: Male

DRUGS (1)
  1. MINOCYCLINE [Suspect]
     Active Substance: MINOCYCLINE\MINOCYCLINE HYDROCHLORIDE
     Indication: ROSACEA
     Route: 048

REACTIONS (5)
  - Normal pressure hydrocephalus [Unknown]
  - Fall [Unknown]
  - Bone hyperpigmentation [Unknown]
  - Skin discolouration [Unknown]
  - Toxicity to various agents [Unknown]
